FAERS Safety Report 4635037-0 (Version None)
Quarter: 2005Q2

REPORT INFORMATION
  Report Type: 
  Country: None (occurrence: None)
  Receive Date: 20050411
  Receipt Date: 20050404
  Transmission Date: 20051028
  Serious: Yes (Death, Life-Threatening, Other)
  Sender: FDA-Public Use
  Company Number: 2005-03-0756

PATIENT
  Age: 50 Year
  Sex: Female
  Weight: 59.8748 kg

DRUGS (8)
  1. PEG-INTRON [Suspect]
     Dosage: SEE IMAGE
     Route: 058
     Dates: start: 20040412, end: 20050130
  2. PEG-INTRON [Suspect]
     Dosage: SEE IMAGE
     Route: 058
     Dates: start: 20040412
  3. PEG-INTRON [Suspect]
     Dosage: SEE IMAGE
     Route: 058
     Dates: start: 20050130
  4. RIBAVIRIN [Suspect]
     Dosage: 1000-800MG QD ORAL; 1000 MG QD ORAL; 800 MG QD ORAL
     Route: 048
     Dates: start: 20040412, end: 20050130
  5. RIBAVIRIN [Suspect]
     Dosage: 1000-800MG QD ORAL; 1000 MG QD ORAL; 800 MG QD ORAL
     Route: 048
     Dates: start: 20040412
  6. RIBAVIRIN [Suspect]
     Dosage: 1000-800MG QD ORAL; 1000 MG QD ORAL; 800 MG QD ORAL
     Route: 048
     Dates: start: 20050131
  7. ANALGESIC (NOS) [Suspect]
     Dosage: OVERDOSE
  8. WELLBUTRIN [Concomitant]

REACTIONS (3)
  - ANAEMIA [None]
  - OVERDOSE [None]
  - WEIGHT DECREASED [None]
